FAERS Safety Report 6596995-0 (Version None)
Quarter: 2010Q1

REPORT INFORMATION
  Report Type: 
  Country: None (occurrence: None)
  Receive Date: 20100223
  Receipt Date: 20100210
  Transmission Date: 20100710
  Serious: No
  Sender: FDA-Public Use
  Company Number: US-ROXANE LABORATORIES, INC.-2010-RO-00156RO

PATIENT
  Sex: Female
  Weight: 54 kg

DRUGS (4)
  1. PREDNISONE [Suspect]
     Indication: RHEUMATOID ARTHRITIS
     Dosage: 5 MG
     Route: 048
     Dates: start: 20100106
  2. KAPIDEX [Suspect]
     Indication: DYSPEPSIA
     Dosage: 60 MG
     Route: 048
     Dates: start: 20100115, end: 20100127
  3. ATENOLOL [Concomitant]
     Indication: HYPERTENSION
     Dosage: 12.5 MG
     Route: 048
     Dates: start: 20030101
  4. NORVASC [Concomitant]
     Indication: HYPERTENSION
     Dosage: 5 MG
     Route: 048
     Dates: start: 20030101

REACTIONS (4)
  - BACK PAIN [None]
  - DRUG INTERACTION [None]
  - HEART RATE INCREASED [None]
  - HYPERTENSION [None]
